FAERS Safety Report 5429496-3 (Version None)
Quarter: 2007Q3

REPORT INFORMATION
  Report Type: 
  Country: None (occurrence: None)
  Receive Date: 20070829
  Receipt Date: 20070820
  Transmission Date: 20080115
  Serious: Yes (Hospitalization)
  Sender: FDA-Public Use
  Company Number: B0484679A

PATIENT
  Age: 54 Year
  Sex: Female
  Weight: 92 kg

DRUGS (2)
  1. LAPATINIB [Suspect]
     Indication: BREAST CANCER
     Dosage: 1250MG PER DAY
     Route: 048
     Dates: start: 20070727
  2. CAPECITABINE [Suspect]
     Indication: BREAST CANCER
     Dosage: 4000MG PER DAY
     Route: 048
     Dates: start: 20070727

REACTIONS (2)
  - DEHYDRATION [None]
  - PYREXIA [None]
